FAERS Safety Report 19410626 (Version 2)
Quarter: 2021Q3

REPORT INFORMATION
  Report Type: Spontaneous
  Country: IT (occurrence: IT)
  Receive Date: 20210614
  Receipt Date: 20210702
  Transmission Date: 20211014
  Serious: Yes (Other)
  Sender: FDA-Public Use
  Company Number: IT-HBP-2021IT022185

PATIENT
  Sex: Female
  Weight: 99 kg

DRUGS (29)
  1. DOCETAXEL. [Suspect]
     Active Substance: DOCETAXEL
     Indication: BREAST CANCER
     Dosage: 150 MILLIGRAM, Q3WK
     Route: 042
     Dates: start: 20170424, end: 20170816
  2. ERIBULIN MESYLATE [Suspect]
     Active Substance: ERIBULIN MESYLATE
     Indication: BREAST CANCER
     Dosage: 2 MILLIGRAM, UNKNOWN
     Route: 042
     Dates: start: 20201127
  3. TRASTUZUMAB EMTANSINE [Suspect]
     Active Substance: ADO-TRASTUZUMAB EMTANSINE
     Indication: BREAST CANCER
     Dosage: 75 MILLIGRAM, Q3WK, ON 26?SEP?2018 RECEIVED THE MOST RECENT DOSE PRIOR TO THE EVENT
     Route: 058
     Dates: start: 20180905, end: 20180905
  4. CYCLOPHOSPHAMIDE. [Suspect]
     Active Substance: CYCLOPHOSPHAMIDE
     Dosage: 25 MILLIGRAM, QD
     Route: 042
     Dates: start: 20191030
  5. RANITIDINE. [Concomitant]
     Active Substance: RANITIDINE
     Dosage: UNK, UNKNOWN
     Route: 065
  6. RAMIPRIL. [Concomitant]
     Active Substance: RAMIPRIL
     Dosage: UNK, UNKNOWN
     Route: 065
     Dates: start: 20190909
  7. VENLAFAXINA                        /01233801/ [Concomitant]
     Active Substance: VENLAFAXINE HYDROCHLORIDE
     Dosage: UNK, UNKNOWN
     Route: 065
  8. CARBOPLATIN. [Suspect]
     Active Substance: CARBOPLATIN
     Indication: BREAST CANCER
     Dosage: 600 MILLIGRAM, Q3WK, ON 28?JUL?2020 RECEIVED THE MOST RECENT DOSE PRIOR TO THE EVENT
     Route: 042
     Dates: start: 20200422, end: 20200422
  9. GRANISETRON [Concomitant]
     Active Substance: GRANISETRON
     Dosage: UNK, UNKNOWN
     Route: 065
  10. METHOTREXATE. [Suspect]
     Active Substance: METHOTREXATE
     Indication: BREAST CANCER
     Dosage: 5 MILLIGRAM, UNKNOWN, ON 11?DEC?2019 RECEIVED THE MOSTRECENT DOSE PRIOR TO THE EVENT
     Route: 048
     Dates: start: 20191030, end: 20191127
  11. VINORELBINE [Suspect]
     Active Substance: VINORELBINE TARTRATE
     Indication: BREAST CANCER
     Dosage: 50 MILLIGRAM, UNKNOWN, ON 02?MAR?2019 RECEIVED THE MOST RECENT DOSE PRIOR TO THE EVENT
     Route: 042
     Dates: start: 20190307, end: 20190404
  12. TRASTUZUMAB. [Suspect]
     Active Substance: TRASTUZUMAB
     Indication: BREAST CANCER
     Dosage: 816 MILLIGRAM, Q3WK, ON 27?SEP?2017 RECEIVED THE MOST RECENT DOSE PRIOR TO THE EVENT
     Route: 041
     Dates: start: 20170424, end: 20170424
  13. ESOMEPRAZOLE. [Concomitant]
     Active Substance: ESOMEPRAZOLE MAGNESIUM
     Dosage: UNK, UNKNOWN
     Route: 065
     Dates: start: 20200129
  14. TRASTUZUMAB. [Suspect]
     Active Substance: TRASTUZUMAB
     Dosage: 840 MILLIGRAM, Q3WK, ON 09?JUN?2020 RECEIVED THE MOST RECENT DOSE PRIOR TO THE EVENT
     Route: 042
     Dates: start: 20190307, end: 20190307
  15. PERTUZUMAB. [Suspect]
     Active Substance: PERTUZUMAB
     Indication: BREAST CANCER
     Dosage: 840 MILLIGRAM, UNKNOWN, ON 24?MAY?2017 HE RECEIVED THE MOST RECENT DOSE PRIOR TO THE EVENT
     Route: 042
     Dates: start: 20170424, end: 20170424
  16. METOCLOPRAMIDE. [Concomitant]
     Active Substance: METOCLOPRAMIDE
     Dosage: UNK, UNKNOWN
     Route: 065
     Dates: start: 20200401
  17. NETUPITANT?PALONOSETRON [Suspect]
     Active Substance: NETUPITANT\PALONOSETRON HYDROCHLORIDE
     Indication: BREAST CANCER
     Dosage: 300.5 MILLIGRAM, Q3WK
     Route: 042
     Dates: start: 20181128, end: 20190130
  18. PREDNISONE. [Concomitant]
     Active Substance: PREDNISONE
     Dosage: UNK, UNKNOWN
     Route: 065
  19. TRASTUZUMAB. [Suspect]
     Active Substance: TRASTUZUMAB
     Dosage: 30 MILLIGRAM, Q3WK
     Route: 042
     Dates: start: 20190404, end: 20200422
  20. TRASTUZUMAB. [Suspect]
     Active Substance: TRASTUZUMAB
     Dosage: 480 MILLIGRAM, Q3WK
     Route: 042
     Dates: start: 20200609, end: 20201118
  21. CYCLOPHOSPHAMIDE. [Suspect]
     Active Substance: CYCLOPHOSPHAMIDE
     Indication: BREAST CANCER
     Dosage: 130 MILLIGRAM, Q3WK, ON 30?JAN?2019 RECEIVED THE MOST RECENT DOSE OF CYCLOPHOSPHAMIDE
     Route: 042
     Dates: start: 20181128
  22. CAPECITABINE. [Suspect]
     Active Substance: CAPECITABINE
     Indication: BREAST CANCER
     Dosage: 4000 MILLIGRAM, QD
     Route: 048
     Dates: start: 20180521, end: 20180904
  23. PALONOSETRON. [Concomitant]
     Active Substance: PALONOSETRON HYDROCHLORIDE
     Dosage: UNK, UNKNOWN
     Route: 065
  24. DEXAMETHASONE PHOSPHATE [Concomitant]
     Active Substance: DEXAMETHASONE PHOSPHATE
     Dosage: UNK, UNKNOWN
     Route: 065
  25. EPIRUBICIN [Suspect]
     Active Substance: EPIRUBICIN
     Indication: BREAST CANCER
     Dosage: 130 MILLIGRAM, Q3WK
     Route: 042
     Dates: start: 20181128, end: 20190130
  26. LAPATINIB [Suspect]
     Active Substance: LAPATINIB
     Indication: BREAST CANCER
     Dosage: 1250 MILLIGRAM, QD
     Route: 048
     Dates: start: 20180511, end: 20180904
  27. CHLORPHENAMINE MALEATE [Concomitant]
     Active Substance: CHLORPHENIRAMINE MALEATE
     Dosage: UNK, UNKNOWN
     Route: 065
  28. DELTACORTENE [Concomitant]
     Active Substance: PREDNISONE
     Dosage: UNK, UNKNOWN
     Route: 065
     Dates: start: 20200722
  29. LORATADINA [Concomitant]
     Active Substance: LORATADINE
     Dosage: UNK, UNKNOWN
     Route: 065
     Dates: start: 20190816

REACTIONS (2)
  - Neutropenia [Recovering/Resolving]
  - Off label use [Unknown]

NARRATIVE: CASE EVENT DATE: 20181128
